FAERS Safety Report 10556132 (Version 1)
Quarter: 2014Q4

REPORT INFORMATION
  Report Type: Report from Study
  Country: AU (occurrence: AU)
  Receive Date: 20141031
  Receipt Date: 20141031
  Transmission Date: 20150529
  Serious: Yes (Other)
  Sender: FDA-Public Use
  Company Number: AU-ROCHE-1481898

PATIENT
  Age: 20 Year

DRUGS (2)
  1. CLONAZEPAM. [Suspect]
     Active Substance: CLONAZEPAM
     Indication: SIMPLE PARTIAL SEIZURES
     Route: 065
  2. CARBAMAZEPINE. [Concomitant]
     Active Substance: CARBAMAZEPINE
     Indication: SIMPLE PARTIAL SEIZURES
     Route: 065

REACTIONS (2)
  - Somnolence [Recovered/Resolved]
  - Dysarthria [Recovered/Resolved]
